FAERS Safety Report 18326382 (Version 1)
Quarter: 2020Q3

REPORT INFORMATION
  Report Type: Spontaneous
  Country: FR (occurrence: FR)
  Receive Date: 20200929
  Receipt Date: 20200929
  Transmission Date: 20201103
  Serious: Yes (Other)
  Sender: FDA-Public Use
  Company Number: FR-ASTRAZENECA-2020SF24146

PATIENT
  Sex: Female

DRUGS (2)
  1. XEROQUEL [Suspect]
     Active Substance: QUETIAPINE FUMARATE
     Indication: ANXIETY
     Dosage: 300 MG AT ONE TABLET ON EVENING
     Route: 048
  2. XEROQUEL [Suspect]
     Active Substance: QUETIAPINE FUMARATE
     Indication: ANXIETY
     Dosage: DECREASED
     Route: 048

REACTIONS (11)
  - Miosis [Not Recovered/Not Resolved]
  - Eyelid disorder [Not Recovered/Not Resolved]
  - Peripheral swelling [Recovered/Resolved]
  - Photophobia [Not Recovered/Not Resolved]
  - Extraocular muscle disorder [Not Recovered/Not Resolved]
  - Dry eye [Not Recovered/Not Resolved]
  - Constipation [Recovered/Resolved]
  - Weight increased [Unknown]
  - Visual impairment [Not Recovered/Not Resolved]
  - Exophthalmos [Not Recovered/Not Resolved]
  - Off label use [Recovered/Resolved]
